FAERS Safety Report 8366827-9 (Version None)
Quarter: 2012Q2

REPORT INFORMATION
  Report Type: 
  Country: None (occurrence: None)
  Receive Date: 20120517
  Receipt Date: 20120509
  Transmission Date: 20120825
  Serious: Yes (Hospitalization)
  Sender: FDA-Public Use
  Company Number: GB-ROCHE-1067541

PATIENT
  Age: 73 Year
  Sex: Male

DRUGS (2)
  1. NAPROSYN [Suspect]
     Indication: ARTHRITIS
     Route: 048
     Dates: start: 20120401, end: 20120422
  2. NAPROSYN [Suspect]
     Indication: PROCEDURAL PAIN

REACTIONS (7)
  - LETHARGY [None]
  - FAECES DISCOLOURED [None]
  - PALLOR [None]
  - DIZZINESS [None]
  - DUODENAL ULCER [None]
  - ABDOMINAL PAIN [None]
  - SMALL INTESTINAL HAEMORRHAGE [None]
